FAERS Safety Report 15608903 (Version 1)
Quarter: 2018Q4

REPORT INFORMATION
  Report Type: Spontaneous
  Country: US (occurrence: US)
  Receive Date: 20181112
  Receipt Date: 20181112
  Transmission Date: 20190205
  Serious: No
  Sender: FDA-Public Use
  Company Number: US-SA-2018SA308849

PATIENT
  Sex: Female

DRUGS (6)
  1. AMITRIPTYLINE [Concomitant]
     Active Substance: AMITRIPTYLINE
  2. DUPILUMAB [Suspect]
     Active Substance: DUPILUMAB
     Dosage: UNK, QOW
     Route: 058
     Dates: start: 20181004
  3. TRADJENTA [Concomitant]
     Active Substance: LINAGLIPTIN
  4. METOPROLOL TARTRATE. [Concomitant]
     Active Substance: METOPROLOL TARTRATE
  5. DUPILUMAB [Suspect]
     Active Substance: DUPILUMAB
     Indication: RASH
     Dosage: 600 MG, 1X
     Route: 058
  6. LOSARTAN POTASSIUM. [Concomitant]
     Active Substance: LOSARTAN POTASSIUM

REACTIONS (2)
  - Arthropod bite [Unknown]
  - Pruritus [Unknown]
